FAERS Safety Report 4844247-9 (Version None)
Quarter: 2005Q4

REPORT INFORMATION
  Report Type: 
  Country: None (occurrence: None)
  Receive Date: 20051202
  Receipt Date: 20051128
  Transmission Date: 20060501
  Serious: Yes (Hospitalization)
  Sender: FDA-Public Use
  Company Number: US-AVENTIS-200519767US

PATIENT
  Age: 75 Year
  Sex: Male

DRUGS (9)
  1. LANTUS [Suspect]
     Indication: DIABETES MELLITUS NON-INSULIN-DEPENDENT
     Dosage: DOSE UNIT: UNITS
     Dates: start: 20000101, end: 20051127
  2. LANTUS [Suspect]
     Dosage: DOSE UNIT: UNITS
     Dates: start: 20051128
  3. COUMADIN [Concomitant]
     Dosage: DOSE: UNK
     Dates: end: 20051111
  4. COUMADIN [Concomitant]
     Dosage: DOSE: UNK
     Dates: start: 20051017
  5. POTASSIUM [Concomitant]
     Dosage: DOSE: UNK
  6. LIPITOR [Concomitant]
     Dosage: DOSE: UNK
  7. TOPROL-XL [Concomitant]
     Dosage: DOSE: UNK
  8. BENICAR                                 /USA/ [Concomitant]
     Dosage: DOSE: UNK
  9. OPTICLIK (INSULIN INJECTION PEN) [Concomitant]
     Dosage: DOSE: UNK

REACTIONS (2)
  - BLOOD GLUCOSE INCREASED [None]
  - ROTATOR CUFF REPAIR [None]
